FAERS Safety Report 12531221 (Version 1)
Quarter: 2016Q3

REPORT INFORMATION
  Report Type: Report from Study
  Country: US (occurrence: US)
  Receive Date: 20160706
  Receipt Date: 20160706
  Transmission Date: 20161109
  Serious: Yes (Death, Life-Threatening, Hospitalization, Other)
  Sender: FDA-Public Use
  Company Number: US-PFIZER INC-3032044

PATIENT
  Age: 73 Year
  Sex: Male
  Weight: 81 kg

DRUGS (16)
  1. TORADOL [Concomitant]
     Active Substance: KETOROLAC TROMETHAMINE
     Indication: GOUTY ARTHRITIS
     Dosage: UNK
     Dates: start: 20150814, end: 20150814
  2. INDOCIN [Concomitant]
     Active Substance: INDOMETHACIN\INDOMETHACIN SODIUM
     Indication: GOUT
     Dosage: UNK
     Dates: start: 20150814
  3. FISH OIL [Concomitant]
     Active Substance: FISH OIL
     Indication: ARTERIOSCLEROSIS
     Dosage: UNK
     Dates: start: 20100405
  4. NORCO [Concomitant]
     Active Substance: ACETAMINOPHEN\HYDROCODONE BITARTRATE
     Indication: GOUTY ARTHRITIS
     Dosage: UNK
     Dates: start: 20150814
  5. PIOGLITAZONE. [Concomitant]
     Active Substance: PIOGLITAZONE
     Indication: TYPE 2 DIABETES MELLITUS
     Dosage: UNK
     Dates: start: 20150407
  6. COQ10 [Concomitant]
     Active Substance: UBIDECARENONE
     Indication: SUPPLEMENTATION THERAPY
     Dosage: UNK
     Dates: start: 19980315
  7. LISINOPRIL. [Concomitant]
     Active Substance: LISINOPRIL
     Indication: HYPERTENSION
     Dosage: UNK
     Dates: start: 19980813
  8. PLACEBO [Suspect]
     Active Substance: UNSPECIFIED INGREDIENT
     Indication: CARDIOVASCULAR DISORDER
     Dosage: UNK, WEEKLY
     Route: 058
     Dates: start: 20150819
  9. ROCEPHIN [Suspect]
     Active Substance: CEFTRIAXONE SODIUM
     Indication: GOUTY ARTHRITIS
     Dosage: 1 G, SINGLE
     Route: 042
     Dates: start: 20150814, end: 20150814
  10. RED YEAST RICE [Concomitant]
     Active Substance: DIETARY SUPPLEMENT
     Indication: SUPPLEMENTATION THERAPY
     Dosage: UNK
     Dates: start: 20150601
  11. LEVOTHYROXINE. [Concomitant]
     Active Substance: LEVOTHYROXINE
     Indication: HYPOTHYROIDISM
     Dosage: UNK
     Route: 048
     Dates: start: 19990625
  12. CLINDAMYCIN PHOSPHATE. [Suspect]
     Active Substance: CLINDAMYCIN PHOSPHATE
     Indication: GOUTY ARTHRITIS
     Dosage: 600 MG, SINGLE
     Route: 042
     Dates: start: 20150814, end: 20150814
  13. SITAGLIPTIN [Concomitant]
     Active Substance: SITAGLIPTIN
     Indication: TYPE 2 DIABETES MELLITUS
     Dosage: UNK
     Dates: start: 20130315
  14. ASPIRIN. [Concomitant]
     Active Substance: ASPIRIN
     Indication: ARTERIOSCLEROSIS
     Dosage: UNK
     Dates: start: 19980205
  15. IRON [Concomitant]
     Active Substance: IRON
     Indication: IRON DEFICIENCY
     Dosage: UNK
     Dates: start: 20100405
  16. NAPROXEN. [Concomitant]
     Active Substance: NAPROXEN
     Indication: GOUTY ARTHRITIS
     Dosage: UNK
     Dates: start: 20150814

REACTIONS (2)
  - Megacolon [Fatal]
  - Sepsis [Fatal]

NARRATIVE: CASE EVENT DATE: 20150828
